FAERS Safety Report 23213712 (Version 1)
Quarter: 2023Q4

REPORT INFORMATION
  Report Type: Spontaneous
  Country: US (occurrence: US)
  Receive Date: 20231121
  Receipt Date: 20231121
  Transmission Date: 20240110
  Serious: Yes (Hospitalization, Other)
  Sender: FDA-Public Use
  Company Number: US-AMGEN-USASP2023203272

PATIENT
  Age: 66 Year
  Sex: Male

DRUGS (1)
  1. XGEVA [Suspect]
     Active Substance: DENOSUMAB
     Indication: Prostate cancer metastatic
     Dosage: UNK
     Route: 065

REACTIONS (12)
  - Syncope [Recovering/Resolving]
  - Urinary retention [Recovering/Resolving]
  - Alanine aminotransferase increased [Recovering/Resolving]
  - Aspartate aminotransferase increased [Recovering/Resolving]
  - Blood alkaline phosphatase increased [Recovering/Resolving]
  - Blood parathyroid hormone increased [Recovering/Resolving]
  - Hypophagia [Recovered/Resolved]
  - Lethargy [Recovered/Resolved]
  - Malnutrition [Recovered/Resolved]
  - Vomiting [Recovered/Resolved]
  - Nausea [Recovered/Resolved]
  - Hypocalcaemia [Recovering/Resolving]
